FAERS Safety Report 12009874 (Version 1)
Quarter: 2016Q1

REPORT INFORMATION
  Report Type: Report from Study
  Country: US (occurrence: US)
  Receive Date: 20160205
  Receipt Date: 20160205
  Transmission Date: 20160526
  Serious: Yes (Hospitalization)
  Sender: FDA-Public Use
  Company Number: US-BAYER-2016-009150

PATIENT
  Age: 76 Year
  Sex: Male

DRUGS (1)
  1. STIVARGA [Suspect]
     Active Substance: REGORAFENIB
     Indication: COLORECTAL CANCER METASTATIC
     Dosage: 120 MG, QD
     Route: 048
     Dates: start: 20160112, end: 20160127

REACTIONS (13)
  - Abdominal pain upper [None]
  - Dry mouth [Not Recovered/Not Resolved]
  - Malaise [None]
  - Decreased appetite [Recovering/Resolving]
  - Diarrhoea [None]
  - Nausea [None]
  - Erosive oesophagitis [None]
  - Oral disorder [Recovering/Resolving]
  - Fatigue [Not Recovered/Not Resolved]
  - Vomiting [None]
  - Weight decreased [None]
  - Abdominal rigidity [None]
  - Fatigue [None]

NARRATIVE: CASE EVENT DATE: 201601
